FAERS Safety Report 12549861 (Version 1)
Quarter: 2016Q3

REPORT INFORMATION
  Report Type: Spontaneous
  Country: US (occurrence: US)
  Receive Date: 20160712
  Receipt Date: 20160712
  Transmission Date: 20161109
  Serious: No
  Sender: FDA-Public Use
  Company Number: US-TEVA-675537ACC

PATIENT
  Sex: Female

DRUGS (1)
  1. AFTERA [Suspect]
     Active Substance: LEVONORGESTREL
     Indication: POST COITAL CONTRACEPTION
     Dates: start: 20160601, end: 20160601

REACTIONS (5)
  - Fatigue [Unknown]
  - Somnolence [Unknown]
  - Nausea [Not Recovered/Not Resolved]
  - Breast pain [Not Recovered/Not Resolved]
  - Abdominal pain [Not Recovered/Not Resolved]
